FAERS Safety Report 7049595-2 (Version None)
Quarter: 2010Q4

REPORT INFORMATION
  Report Type: 
  Country: None (occurrence: None)
  Receive Date: 20101018
  Receipt Date: 20101006
  Transmission Date: 20110411
  Serious: Yes (Hospitalization)
  Sender: FDA-Public Use
  Company Number: US-BAYER-201014075NA

PATIENT
  Age: 20 Year
  Sex: Female
  Weight: 62 kg

DRUGS (6)
  1. YAZ [Suspect]
     Indication: PRODUCT USED FOR UNKNOWN INDICATION
     Route: 048
     Dates: start: 20070101, end: 20080101
  2. YASMIN [Suspect]
     Indication: PRODUCT USED FOR UNKNOWN INDICATION
     Route: 048
  3. UNKNOWN DRUGS [Concomitant]
  4. LOESTRIN 1.5/30 [Concomitant]
     Indication: CONTRACEPTION
     Route: 065
     Dates: start: 20090408, end: 20090729
  5. RECLIPSEN [Concomitant]
     Indication: CONTRACEPTION
     Route: 065
     Dates: start: 20091228
  6. NSAIDS [Concomitant]
     Indication: PAIN

REACTIONS (3)
  - CHOLECYSTECTOMY [None]
  - HYPERKALAEMIA [None]
  - RENAL DISORDER [None]
